FAERS Safety Report 18546769 (Version 1)
Quarter: 2020Q4

REPORT INFORMATION
  Report Type: Spontaneous
  Country: DE (occurrence: DE)
  Receive Date: 20201125
  Receipt Date: 20201125
  Transmission Date: 20210114
  Serious: Yes (Other)
  Sender: FDA-Public Use
  Company Number: DE-ABBVIE-20K-062-3666125-00

PATIENT
  Sex: Female

DRUGS (2)
  1. IMBRUVICA [Suspect]
     Active Substance: IBRUTINIB
     Route: 048
  2. IMBRUVICA [Suspect]
     Active Substance: IBRUTINIB
     Indication: CHRONIC LYMPHOCYTIC LEUKAEMIA
     Route: 048
     Dates: start: 202009

REACTIONS (8)
  - Gait inability [Unknown]
  - Haemoglobin abnormal [Unknown]
  - Cataract [Unknown]
  - Visual impairment [Unknown]
  - Peripheral swelling [Unknown]
  - Platelet count abnormal [Unknown]
  - Dry mouth [Unknown]
  - Rash [Unknown]
